FAERS Safety Report 5312263-9 (Version None)
Quarter: 2007Q2

REPORT INFORMATION
  Report Type: 
  Country: None (occurrence: None)
  Receive Date: 20070430
  Receipt Date: 20060926
  Transmission Date: 20071010
  Serious: No
  Sender: FDA-Public Use
  Company Number: 2006UW19016

PATIENT
  Age: 72 Year
  Sex: Female
  Weight: 76.8 kg

DRUGS (3)
  1. NEXIUM [Suspect]
     Route: 048
  2. PRILOSEC OTC [Suspect]
     Indication: DYSPEPSIA
     Route: 048
     Dates: start: 20060925, end: 20060925
  3. MIRAPEX [Concomitant]

REACTIONS (2)
  - FORMICATION [None]
  - RESTLESS LEGS SYNDROME [None]
